FAERS Safety Report 4832517-X (Version None)
Quarter: 2005Q4

REPORT INFORMATION
  Report Type: 
  Country: None (occurrence: None)
  Receive Date: 20051117
  Receipt Date: 20051117
  Transmission Date: 20060501
  Serious: Yes (Other)
  Sender: FDA-Public Use
  Company Number: None

PATIENT
  Age: 29 Year
  Sex: Female
  Weight: 56.6996 kg

DRUGS (1)
  1. LARIAM [Suspect]
     Indication: MALARIA PROPHYLAXIS
     Dosage: 1 PILL WEEKLY  PO
     Route: 048
     Dates: start: 20051015, end: 20051112

REACTIONS (7)
  - DEPRESSION [None]
  - FEELING OF DESPAIR [None]
  - HEART RATE INCREASED [None]
  - INSOMNIA [None]
  - PANIC ATTACK [None]
  - PARANOIA [None]
  - SUICIDAL IDEATION [None]
